FAERS Safety Report 23970285 (Version 5)
Quarter: 2024Q3

REPORT INFORMATION
  Report Type: Report from Study
  Country: US (occurrence: US)
  Receive Date: 20240613
  Receipt Date: 20240902
  Transmission Date: 20241016
  Serious: Yes (Other)
  Sender: NOVARTIS
  Company Number: US-002147023-NVSC2024US122019

PATIENT
  Age: 56 Year
  Sex: Female

DRUGS (1)
  1. KESIMPTA [Suspect]
     Active Substance: OFATUMUMAB
     Indication: Multiple sclerosis
     Dosage: 20 MG, (LOADING DOSE) ONE DOSE PER WEEK FOR THREE WEEKS
     Route: 058
     Dates: start: 20240609

REACTIONS (7)
  - Paralysis [Recovering/Resolving]
  - Hypokinesia [Recovering/Resolving]
  - Asthenia [Recovering/Resolving]
  - Feeling of body temperature change [Unknown]
  - Muscular weakness [Unknown]
  - Nasopharyngitis [Not Recovered/Not Resolved]
  - Hypersensitivity [Not Recovered/Not Resolved]

NARRATIVE: CASE EVENT DATE: 20240609
